FAERS Safety Report 5964040-3 (Version None)
Quarter: 2008Q4

REPORT INFORMATION
  Report Type: 
  Country: None (occurrence: None)
  Receive Date: 20081124
  Receipt Date: 20081113
  Transmission Date: 20090506
  Serious: Yes (Other)
  Sender: FDA-Public Use
  Company Number: IN-JNJCH-2008054826

PATIENT
  Age: 31 Year
  Sex: Male

DRUGS (2)
  1. HYDROGEN PEROXIDE SOLUTION [Suspect]
     Indication: DRUG USE FOR UNKNOWN INDICATION
     Dosage: TEXT:20ML, UNSPECIFIED
     Route: 061
  2. SODIUM CHLORIDE [Suspect]
     Indication: DRUG USE FOR UNKNOWN INDICATION
     Dosage: TEXT:20ML, UNSPECIFIED
     Route: 061

REACTIONS (2)
  - EMBOLISM VENOUS [None]
  - HAEMODYNAMIC INSTABILITY [None]
